FAERS Safety Report 9102778 (Version 1)
Quarter: 2013Q1

REPORT INFORMATION
  Report Type: Spontaneous
  Country: BR (occurrence: BR)
  Receive Date: 20130219
  Receipt Date: 20130219
  Transmission Date: 20140127
  Serious: Yes (Death, Other)
  Sender: FDA-Public Use
  Company Number: BR-PFIZER INC-2013060071

PATIENT
  Age: 88 Year
  Sex: Male

DRUGS (1)
  1. LIPITOR [Suspect]
     Indication: BLOOD CHOLESTEROL
     Dosage: 20 MG (ONE TABLET), 1X/DAY
     Dates: start: 2006

REACTIONS (2)
  - Lung neoplasm malignant [Fatal]
  - Pneumonia [Unknown]
